FAERS Safety Report 25887459 (Version 1)
Quarter: 2025Q4

REPORT INFORMATION
  Report Type: Spontaneous
  Country: EU (occurrence: EU)
  Receive Date: 20251006
  Receipt Date: 20251006
  Transmission Date: 20260117
  Serious: Yes (Other)
  Sender: CELLTRION
  Company Number: EU-ABBVIE-6467181

PATIENT

DRUGS (31)
  1. ADALIMUMAB [Suspect]
     Active Substance: ADALIMUMAB
     Indication: Hidradenitis
     Dosage: 40 MG, EVERY 2 WEEKS
     Route: 058
     Dates: start: 2013
  2. ADALIMUMAB [Suspect]
     Active Substance: ADALIMUMAB
     Indication: Arthritis bacterial
     Dosage: EVERY 10-14 DAYS
     Route: 058
  3. ADALIMUMAB [Suspect]
     Active Substance: ADALIMUMAB
     Indication: Pyoderma gangrenosum
     Dosage: 80 MILLIGRAM (EVERY 10-14 DAYS)
     Route: 065
  4. ADALIMUMAB [Suspect]
     Active Substance: ADALIMUMAB
     Indication: Acne
     Dosage: 80 MILLIGRAM (EVERY 10-14 DAYS, (INTENSIFIED DOSE))
     Route: 065
  5. ADALIMUMAB [Suspect]
     Active Substance: ADALIMUMAB
     Indication: PASH syndrome
     Dosage: UNK
     Route: 065
  6. ACITRETIN [Suspect]
     Active Substance: ACITRETIN
     Indication: Hidradenitis
  7. ACITRETIN [Suspect]
     Active Substance: ACITRETIN
     Indication: Arthritis bacterial
  8. ACITRETIN [Suspect]
     Active Substance: ACITRETIN
     Indication: Pyoderma gangrenosum
  9. ACITRETIN [Suspect]
     Active Substance: ACITRETIN
     Indication: Acne
  10. DAPSONE [Suspect]
     Active Substance: DAPSONE
     Indication: Hidradenitis
     Dosage: 5 %
  11. DAPSONE [Suspect]
     Active Substance: DAPSONE
     Indication: Arthritis bacterial
  12. DAPSONE [Suspect]
     Active Substance: DAPSONE
     Indication: Pyoderma gangrenosum
  13. DAPSONE [Suspect]
     Active Substance: DAPSONE
     Indication: Acne
  14. ETANERCEPT [Suspect]
     Active Substance: ETANERCEPT
     Indication: Arthritis bacterial
     Dosage: 50 MILLIGRAM, QWK
     Route: 065
  15. ETANERCEPT [Suspect]
     Active Substance: ETANERCEPT
     Indication: PASH syndrome
  16. PREDNISOLONE [Concomitant]
     Active Substance: PREDNISOLONE
     Indication: Arthritis bacterial
  17. PREDNISOLONE [Concomitant]
     Active Substance: PREDNISOLONE
     Indication: PASH syndrome
  18. ISOTRETINOIN [Concomitant]
     Active Substance: ISOTRETINOIN
     Indication: Acne
  19. ISOTRETINOIN [Concomitant]
     Active Substance: ISOTRETINOIN
     Indication: Arthritis bacterial
  20. ISOTRETINOIN [Concomitant]
     Active Substance: ISOTRETINOIN
     Indication: PASH syndrome
  21. SECUKINUMAB [Concomitant]
     Active Substance: SECUKINUMAB
     Indication: Arthritis bacterial
     Dosage: UNK, Q4WK (150-300 MG)
  22. SECUKINUMAB [Concomitant]
     Active Substance: SECUKINUMAB
     Indication: PASH syndrome
  23. METHOTREXATE [Concomitant]
     Active Substance: METHOTREXATE
     Indication: Prophylaxis
     Dosage: 5 MILLIGRAM, QWK
  24. ACITRETIN [Concomitant]
     Active Substance: ACITRETIN
     Indication: Arthritis bacterial
  25. ACITRETIN [Concomitant]
     Active Substance: ACITRETIN
     Indication: PASH syndrome
  26. DAPSONE [Concomitant]
     Active Substance: DAPSONE
     Indication: Arthritis bacterial
  27. DAPSONE [Concomitant]
     Active Substance: DAPSONE
     Indication: PASH syndrome
  28. CLINDAMYCIN [Concomitant]
     Active Substance: CLINDAMYCIN
     Indication: Arthritis bacterial
  29. CLINDAMYCIN [Concomitant]
     Active Substance: CLINDAMYCIN
     Indication: PASH syndrome
  30. CLOBETASOL [Concomitant]
     Active Substance: CLOBETASOL
     Indication: Arthritis bacterial
  31. CLOBETASOL [Concomitant]
     Active Substance: CLOBETASOL
     Indication: PASH syndrome

REACTIONS (8)
  - PASH syndrome [Recovering/Resolving]
  - Arthritis bacterial [Recovering/Resolving]
  - Oligoarthritis [Unknown]
  - Acne cystic [Unknown]
  - Hidradenitis [Unknown]
  - Off label use [Unknown]
  - Intentional product use issue [Unknown]
  - Drug ineffective for unapproved indication [Unknown]

NARRATIVE: CASE EVENT DATE: 20170101
